FAERS Safety Report 18991296 (Version 3)
Quarter: 2021Q2

REPORT INFORMATION
  Report Type: Spontaneous
  Country: US (occurrence: US)
  Receive Date: 20210310
  Receipt Date: 20210401
  Transmission Date: 20210717
  Serious: Yes (Hospitalization, Other)
  Sender: FDA-Public Use
  Company Number: US-GW PHARMA-202103USGW00997

PATIENT

DRUGS (2)
  1. EPIDIOLEX [Suspect]
     Active Substance: CANNABIDIOL
     Indication: EPILEPSY
     Dosage: 17.5 MG/KG/DAY, 380 MILLIGRAM, BID
  2. EPIDIOLEX [Suspect]
     Active Substance: CANNABIDIOL
     Indication: EPILEPSY
     Dosage: 16.1 MG/KG/DAY, 350 MILLIGRAM, BID
     Dates: start: 20201203

REACTIONS (4)
  - Product use in unapproved indication [Unknown]
  - Seizure [Unknown]
  - Drug effective for unapproved indication [Unknown]
  - Hospitalisation [Recovered/Resolved]

NARRATIVE: CASE EVENT DATE: 20210305
